FAERS Safety Report 9626933 (Version 1)
Quarter: 2013Q4

REPORT INFORMATION
  Report Type: Spontaneous
  Country: GB (occurrence: GB)
  Receive Date: 20131016
  Receipt Date: 20131016
  Transmission Date: 20140711
  Serious: Yes (Other)
  Sender: FDA-Public Use
  Company Number: GB-TEVA-437438ISR

PATIENT
  Sex: Male
  Weight: 80 kg

DRUGS (1)
  1. LANSOPRAZOLE [Suspect]
     Indication: COUGH
     Route: 048
     Dates: start: 201206, end: 201306

REACTIONS (2)
  - Somnolence [Recovered/Resolved]
  - Activities of daily living impaired [Recovered/Resolved]
